FAERS Safety Report 22039017 (Version 2)
Quarter: 2023Q1

REPORT INFORMATION
  Report Type: Spontaneous
  Country: CH (occurrence: CH)
  Receive Date: 20230227
  Receipt Date: 20230301
  Transmission Date: 20230417
  Serious: Yes (Hospitalization)
  Sender: FDA-Public Use
  Company Number: CH-MYLANLABS-2023M1020059

PATIENT
  Age: 76 Year
  Sex: Female
  Weight: 41.5 kg

DRUGS (22)
  1. ATORVASTATIN [Suspect]
     Active Substance: ATORVASTATIN
     Indication: Product used for unknown indication
     Dosage: 10 MILLIGRAM, QD
     Route: 065
     Dates: end: 20230202
  2. ACTEMRA [Suspect]
     Active Substance: TOCILIZUMAB
     Indication: Osteomyelitis
     Dosage: UNK
     Route: 058
     Dates: start: 201707, end: 201712
  3. ACTEMRA [Suspect]
     Active Substance: TOCILIZUMAB
     Dosage: UNK, INTRAVENOUS DRIP
     Route: 065
     Dates: start: 2018, end: 202208
  4. ACTEMRA [Suspect]
     Active Substance: TOCILIZUMAB
     Dosage: UNK, INTRAVENOUS DRIP
     Route: 065
     Dates: start: 20221129, end: 20230126
  5. BISOPROLOL FUMARATE [Suspect]
     Active Substance: BISOPROLOL FUMARATE
     Indication: Product used for unknown indication
     Dosage: 5 MILLIGRAM, BID (EVERY 12 HOURS)
     Route: 065
     Dates: end: 20230202
  6. COVERAM [Suspect]
     Active Substance: AMLODIPINE\PERINDOPRIL
     Indication: Product used for unknown indication
     Dosage: 5 MILLIGRAM, QD
     Route: 065
     Dates: start: 20221125, end: 20230203
  7. ACLASTA [Concomitant]
     Active Substance: ZOLEDRONIC ACID
     Dosage: 1 DOSAGE FORM
     Route: 065
     Dates: start: 2009
  8. PALEXIA [Concomitant]
     Active Substance: TAPENTADOL HYDROCHLORIDE
     Dosage: 50 MILLIGRAM, 1.5-1-1.5-1
     Route: 065
  9. PRADAXA [Concomitant]
     Active Substance: DABIGATRAN ETEXILATE MESYLATE
     Dosage: 150 MILLIGRAM
     Route: 065
  10. PREDNISONE [Concomitant]
     Active Substance: PREDNISONE
     Dosage: 5 MILLIGRAM, QD
     Route: 065
     Dates: end: 20230201
  11. PREDNISONE [Concomitant]
     Active Substance: PREDNISONE
     Dosage: 40 MILLIGRAM, QD (START 02-FEB-2023)
     Route: 065
  12. Novalgin [Concomitant]
     Dosage: 500 MILLIGRAM (1-1-1-1)
     Route: 065
  13. TERIPARATIDE [Concomitant]
     Active Substance: TERIPARATIDE
     Dosage: 20 MICROGRAM, QD
     Route: 065
     Dates: start: 202202
  14. LORAZEPAM [Concomitant]
     Active Substance: LORAZEPAM
     Dosage: 1 MILLIGRAM, QD
     Route: 065
  15. BUDESONIDE\FORMOTEROL FUMARATE DIHYDRATE [Concomitant]
     Active Substance: BUDESONIDE\FORMOTEROL FUMARATE DIHYDRATE
     Dosage: 1 DOSAGE FORM, QD
     Route: 055
  16. CALCIUM CARBONATE\CHOLECALCIFEROL [Concomitant]
     Active Substance: CALCIUM CARBONATE\CHOLECALCIFEROL
     Dosage: 500 MILLIGRAM, QD
     Route: 065
  17. PANTOZOL [Concomitant]
     Active Substance: PANTOPRAZOLE SODIUM
     Dosage: 20 MILLIGRAM, QD
     Route: 065
     Dates: end: 20230125
  18. PANTOZOL [Concomitant]
     Active Substance: PANTOPRAZOLE SODIUM
     Dosage: 20 MILLIGRAM, QD (START 31-JAN-2023)
     Route: 065
     Dates: end: 20230203
  19. PANTOZOL [Concomitant]
     Active Substance: PANTOPRAZOLE SODIUM
     Dosage: 40 MILLIGRAM, QD (START 04-FEB-2023)
     Route: 065
  20. IMODIUM [Concomitant]
     Active Substance: LOPERAMIDE HYDROCHLORIDE
     Dosage: 2 MILLIGRAM, EVERY 8 HOURS
     Route: 065
     Dates: start: 20230103, end: 20230131
  21. IMODIUM [Concomitant]
     Active Substance: LOPERAMIDE HYDROCHLORIDE
     Dosage: 4 MILLIGRAM, EVERY 8 HOURS
     Route: 065
     Dates: start: 20230201, end: 20230205
  22. IMODIUM [Concomitant]
     Active Substance: LOPERAMIDE HYDROCHLORIDE
     Dosage: 4 MILLIGRAM, EVERY 8 HOURS
     Route: 065
     Dates: start: 20230206

REACTIONS (1)
  - Colitis microscopic [Not Recovered/Not Resolved]

NARRATIVE: CASE EVENT DATE: 20230130
